FAERS Safety Report 19833419 (Version 1)
Quarter: 2021Q3

REPORT INFORMATION
  Report Type: Spontaneous
  Country: DE (occurrence: DE)
  Receive Date: 20210915
  Receipt Date: 20210915
  Transmission Date: 20211014
  Serious: Yes (Hospitalization)
  Sender: FDA-Public Use
  Company Number: DE-TEVA-2021-DE-1954524

PATIENT
  Age: 55 Year
  Sex: Male

DRUGS (1)
  1. COPAXONE [Suspect]
     Active Substance: GLATIRAMER ACETATE
     Indication: MULTIPLE SCLEROSIS
     Dates: start: 20160104

REACTIONS (5)
  - Upper limb fracture [Unknown]
  - Procedural pain [Unknown]
  - Fall [Unknown]
  - Arthralgia [Unknown]
  - Ligament rupture [Unknown]

NARRATIVE: CASE EVENT DATE: 20191130
